FAERS Safety Report 6566582-9 (Version None)
Quarter: 2010Q1

REPORT INFORMATION
  Report Type: 
  Country: None (occurrence: None)
  Receive Date: 20100202
  Receipt Date: 20100118
  Transmission Date: 20100710
  Serious: Yes (Hospitalization)
  Sender: FDA-Public Use
  Company Number: FR-JNJFOC-20100200051

PATIENT
  Age: 25 Year
  Sex: Female

DRUGS (1)
  1. IXPRIM [Suspect]
     Indication: PAIN
     Route: 048
     Dates: start: 20100112, end: 20100116

REACTIONS (1)
  - PULMONARY EMBOLISM [None]
